FAERS Safety Report 4729939-4 (Version None)
Quarter: 2005Q3

REPORT INFORMATION
  Report Type: 
  Country: None (occurrence: None)
  Receive Date: 20050729
  Receipt Date: 20050729
  Transmission Date: 20060218
  Serious: No
  Sender: FDA-Public Use
  Company Number: None

PATIENT
  Age: 62 Year
  Sex: Male
  Weight: 48.9885 kg

DRUGS (2)
  1. FUROSEMIDE [Suspect]
     Indication: CARDIAC FAILURE CONGESTIVE
     Dosage: 40 MG PO Q AM
     Route: 048
     Dates: start: 20050401
  2. FUROSEMIDE [Suspect]
     Indication: CARDIAC FAILURE CONGESTIVE
     Dosage: 40 MG PO Q AM
     Route: 048
     Dates: start: 20050501

REACTIONS (1)
  - BLOOD CREATININE INCREASED [None]
